FAERS Safety Report 7953910-2 (Version None)
Quarter: 2011Q4

REPORT INFORMATION
  Report Type: 
  Country: None (occurrence: None)
  Receive Date: 20111202
  Receipt Date: 20111123
  Transmission Date: 20120403
  Serious: Yes (Other)
  Sender: FDA-Public Use
  Company Number: BR-BRISTOL-MYERS SQUIBB COMPANY-16261539

PATIENT
  Age: 5 Decade
  Sex: Male

DRUGS (2)
  1. GLYBURIDE [Suspect]
  2. METFORMIN HCL [Suspect]

REACTIONS (1)
  - RENAL FAILURE CHRONIC [None]
